FAERS Safety Report 24414906 (Version 2)
Quarter: 2025Q3

REPORT INFORMATION
  Report Type: Spontaneous
  Country: CN (occurrence: CN)
  Receive Date: 20241009
  Receipt Date: 20250809
  Transmission Date: 20251020
  Serious: Yes (Hospitalization, Other)
  Sender: ALEXION PHARMACEUTICALS
  Company Number: CN-ASTRAZENECA-202409CHN001556CN

PATIENT
  Age: 72 Year
  Sex: Female

DRUGS (1)
  1. XIGDUO XR [Suspect]
     Active Substance: DAPAGLIFLOZIN PROPANEDIOL\METFORMIN HYDROCHLORIDE
     Indication: Blood glucose
     Dosage: 1 DOSAGE FORM, QD
     Dates: start: 20240910, end: 20240915

REACTIONS (4)
  - Ketoacidosis [Unknown]
  - Headache [Unknown]
  - Appetite disorder [Unknown]
  - Nausea [Unknown]
